FAERS Safety Report 8276850-0 (Version None)
Quarter: 2012Q2

REPORT INFORMATION
  Report Type: 
  Country: None (occurrence: None)
  Receive Date: 20120412
  Receipt Date: 20120404
  Transmission Date: 20120825
  Serious: Yes (Hospitalization)
  Sender: FDA-Public Use
  Company Number: FR-ALLERGAN-1204929US

PATIENT
  Age: 77 Year
  Sex: Male

DRUGS (10)
  1. LOVENOX [Concomitant]
  2. FERROUS SULFATE TAB [Concomitant]
  3. ATORVASTATIN [Concomitant]
  4. BIMATOPROST AND TIMOLOL MALEATE [Suspect]
     Indication: GLAUCOMA
     Dosage: 1 GTT, QD
     Route: 047
  5. SINGULAIR [Concomitant]
  6. TAMSULOSIN HCL [Suspect]
     Indication: BENIGN PROSTATIC HYPERPLASIA
     Dosage: 0.4 MG, QD
     Route: 048
  7. RAMIPRIL [Concomitant]
  8. OXEOL [Concomitant]
  9. FLUTICASONE PROPIONATE/SALMETEROL [Concomitant]
  10. LANTUS [Concomitant]

REACTIONS (1)
  - ORTHOSTATIC HYPOTENSION [None]
